FAERS Safety Report 24889371 (Version 1)
Quarter: 2025Q1

REPORT INFORMATION
  Report Type: Spontaneous
  Country: US (occurrence: US)
  Receive Date: 20250127
  Receipt Date: 20250127
  Transmission Date: 20250408
  Serious: Yes (Other)
  Sender: MERCK
  Company Number: US-009507513-2501USA006064

PATIENT
  Age: 67 Year
  Sex: Female

DRUGS (4)
  1. KEYTRUDA [Suspect]
     Active Substance: PEMBROLIZUMAB
     Indication: Endometrial cancer metastatic
  2. KEYTRUDA [Suspect]
     Active Substance: PEMBROLIZUMAB
  3. KEYTRUDA [Suspect]
     Active Substance: PEMBROLIZUMAB
  4. LENVATINIB MESYLATE [Concomitant]
     Active Substance: LENVATINIB MESYLATE
     Indication: Endometrial cancer metastatic

REACTIONS (4)
  - Dermatitis bullous [Recovered/Resolved]
  - Lichenoid keratosis [Recovered/Resolved]
  - Oral mucosa erosion [Recovered/Resolved]
  - Loss of personal independence in daily activities [Unknown]
